FAERS Safety Report 4272911-1 (Version None)
Quarter: 2004Q1

REPORT INFORMATION
  Report Type: 
  Country: None (occurrence: None)
  Receive Date: 20040114
  Receipt Date: 20040106
  Transmission Date: 20041129
  Serious: Yes (Death)
  Sender: FDA-Public Use
  Company Number: NSADSS2003005047

PATIENT
  Age: 77 Year
  Sex: Female
  Weight: 94 kg

DRUGS (7)
  1. LEVOFLOXACIN [Suspect]
     Indication: BRONCHITIS
     Dosage: ORAL
     Route: 048
     Dates: start: 20021216, end: 20021222
  2. CORDARONE (AMIODARONE HYDROCHLORIDE UNSPECIFIED [Concomitant]
  3. LASIX [Concomitant]
  4. MAXAIR (PIRBUTEROL ACETATE) SOLUTION [Concomitant]
  5. APROVEL (IRBESARTAN) UNSPECIFIED [Concomitant]
  6. INH IISONIAZID) UNSPECIFIED [Concomitant]
  7. SOLUPRED (TABLETS) PREDNISOLONE SODIUM SULFOBENZOATE [Concomitant]

REACTIONS (7)
  - ANURIA [None]
  - CARDIAC FAILURE [None]
  - CYTOLYTIC HEPATITIS [None]
  - HAEMODIALYSIS [None]
  - MYOCARDIAL INFARCTION [None]
  - RENAL FAILURE ACUTE [None]
  - RHABDOMYOLYSIS [None]
